FAERS Safety Report 6872196-3 (Version None)
Quarter: 2010Q3

REPORT INFORMATION
  Report Type: 
  Country: None (occurrence: None)
  Receive Date: 20100723
  Receipt Date: 20100715
  Transmission Date: 20110219
  Serious: Yes (Hospitalization, Other)
  Sender: FDA-Public Use
  Company Number: US-AMGEN-QUU424754

PATIENT
  Sex: Female

DRUGS (4)
  1. ENBREL [Suspect]
     Indication: PRODUCT USED FOR UNKNOWN INDICATION
  2. CYCLOSPORINE [Suspect]
     Indication: PSORIASIS
     Route: 048
     Dates: start: 20070101
  3. ATORVASTATIN [Concomitant]
  4. UNSPECIFIED MEDICATION [Concomitant]

REACTIONS (6)
  - DRUG INEFFECTIVE [None]
  - HEART RATE INCREASED [None]
  - HYPERTENSION [None]
  - LUNG INFECTION [None]
  - LUNG NEOPLASM [None]
  - PSORIASIS [None]
